FAERS Safety Report 25889870 (Version 2)
Quarter: 2025Q4

REPORT INFORMATION
  Report Type: Spontaneous
  Country: JP (occurrence: JP)
  Receive Date: 20251007
  Receipt Date: 20251104
  Transmission Date: 20260117
  Serious: Yes (Hospitalization)
  Sender: AMGEN
  Company Number: JP-AMGEN-JPNSP2025196017

PATIENT
  Age: 70 Year
  Sex: Male

DRUGS (3)
  1. BEVACIZUMAB [Suspect]
     Active Substance: BEVACIZUMAB
     Indication: Rectal cancer stage III
     Dosage: UNK, (DRIP INFUSION)
     Route: 040
  2. FLUOROURACIL\LEUCOVORIN CALCIUM\OXALIPLATIN [Concomitant]
     Active Substance: FLUOROURACIL\LEUCOVORIN CALCIUM\OXALIPLATIN
     Indication: Rectal cancer stage II
  3. CAPECITABINE [Concomitant]
     Active Substance: CAPECITABINE
     Indication: Rectal cancer stage II

REACTIONS (3)
  - Rectal cancer metastatic [Unknown]
  - Ileus paralytic [Unknown]
  - Suture rupture [Unknown]
